FAERS Safety Report 7484728-5 (Version None)
Quarter: 2011Q2

REPORT INFORMATION
  Report Type: 
  Country: None (occurrence: None)
  Receive Date: 20110517
  Receipt Date: 20110509
  Transmission Date: 20111010
  Serious: Yes (Hospitalization)
  Sender: FDA-Public Use
  Company Number: US-ROCHE-748668

PATIENT
  Sex: Female

DRUGS (24)
  1. CRESTOR [Concomitant]
     Dates: start: 20100920
  2. PANTOPRAZOLE [Concomitant]
     Dates: start: 20101205
  3. MICAFUNGIN [Concomitant]
     Dosage: DRUG: MICAFUNGIN SODIUM
     Dates: start: 20101228
  4. MYCOPHENOLATE MOFETIL [Suspect]
     Route: 048
     Dates: start: 20080730
  5. ONDANSETRON [Concomitant]
  6. FLUOXETINE [Concomitant]
     Dates: start: 20100503
  7. LISINOPRIL [Concomitant]
     Dates: start: 20100310
  8. INSULIN [Concomitant]
     Dosage: DRUG: INSULIN SLIDING SCALE
  9. BYETTA [Concomitant]
     Dates: start: 20101112
  10. METOCLOPRAMIDE [Concomitant]
  11. METFORMIN HCL [Concomitant]
     Dates: start: 20101117
  12. DAPTOMYCIN [Concomitant]
     Dates: start: 20101228
  13. PIPERACILLIN AND TAZOBACTAM [Concomitant]
     Dates: start: 20101228
  14. HYDROMORPHONE HCL [Concomitant]
     Dates: start: 20101228
  15. ROSUVASTATIN [Concomitant]
     Dates: start: 20101206
  16. LIDODERM [Concomitant]
     Dates: start: 20091106
  17. MOBIC [Concomitant]
     Dates: start: 20101014
  18. MEROPENEM [Concomitant]
  19. AMITRIPTYLINE HCL [Concomitant]
     Dates: start: 20090304
  20. CALCIUM [Concomitant]
     Dates: start: 20080805
  21. BELATACEPT [Suspect]
     Route: 042
     Dates: start: 20080729
  22. ASPIRIN [Concomitant]
     Dates: start: 20091216
  23. ZOLPIDEM [Concomitant]
  24. TIGECYCLINE [Concomitant]
     Dates: start: 20110105

REACTIONS (9)
  - POST PROCEDURAL BILE LEAK [None]
  - BACK PAIN [None]
  - HYPOTENSION [None]
  - DIARRHOEA [None]
  - ABSCESS LIMB [None]
  - URINARY TRACT INFECTION [None]
  - RENAL FAILURE ACUTE [None]
  - ABDOMINAL PAIN [None]
  - BILIARY TRACT DISORDER [None]
